FAERS Safety Report 19219970 (Version 1)
Quarter: 2021Q2

REPORT INFORMATION
  Report Type: Spontaneous
  Country: US (occurrence: US)
  Receive Date: 20210506
  Receipt Date: 20210506
  Transmission Date: 20210717
  Serious: Yes (Life-Threatening, Hospitalization)
  Sender: FDA-Public Use
  Company Number: US-LUPIN PHARMACEUTICALS INC.-2021-06133

PATIENT
  Age: 70 Year
  Sex: Male

DRUGS (16)
  1. ATROPINE. [Suspect]
     Active Substance: ATROPINE
     Indication: SINUS BRADYCARDIA
     Dosage: 0.5 MILLIGRAM (1 DOSE)
     Route: 042
  2. DOPAMINE [Suspect]
     Active Substance: DOPAMINE HYDROCHLORIDE
     Indication: SINUS BRADYCARDIA
     Dosage: UNK ()DOPAMINE DRIP
     Route: 065
  3. MAGNESIUM [Suspect]
     Active Substance: MAGNESIUM
     Indication: CARDIAC ARREST
     Dosage: 2 GRAM
     Route: 042
  4. NOREPINEPHRINE. [Suspect]
     Active Substance: NOREPINEPHRINE
     Indication: SINUS BRADYCARDIA
     Dosage: 200 MICROGRAM (1 MIN)
     Route: 065
  5. HYDROCORTISONE. [Suspect]
     Active Substance: HYDROCORTISONE
     Indication: MYXOEDEMA COMA
     Dosage: 100 MILLIGRAM
     Route: 042
  6. PHENYLEPHRINE [Suspect]
     Active Substance: PHENYLEPHRINE HYDROCHLORIDE
     Indication: CARDIOGENIC SHOCK
     Dosage: 200 MICROGRAM (1 MIN)
     Route: 065
  7. NOREPINEPHRINE. [Suspect]
     Active Substance: NOREPINEPHRINE
     Indication: CARDIOGENIC SHOCK
     Dosage: INITIAL DOSE NOT STATED
     Route: 065
  8. LEVOTHYROXINE. [Suspect]
     Active Substance: LEVOTHYROXINE
     Indication: MYXOEDEMA COMA
     Dosage: 400 MICROGRAM
     Route: 042
  9. PEMBROLIZUMAB. [Suspect]
     Active Substance: PEMBROLIZUMAB
     Indication: METASTATIC RENAL CELL CARCINOMA
     Dosage: 200 MILLIGRAM
     Route: 042
  10. CARVEDILOL. [Concomitant]
     Active Substance: CARVEDILOL
     Indication: ATRIAL FIBRILLATION
     Dosage: 12.5 MILLIGRAM
     Route: 048
  11. AXITINIB [Suspect]
     Active Substance: AXITINIB
     Indication: METASTATIC RENAL CELL CARCINOMA
     Dosage: 7 MILLIGRAM, BID
     Route: 048
  12. EPINEPHRINE. [Suspect]
     Active Substance: EPINEPHRINE
     Indication: CARDIOGENIC SHOCK
     Dosage: 100 MICROGRAM
  13. LEVOTHYROXINE. [Concomitant]
     Active Substance: LEVOTHYROXINE
     Indication: HYPOTHYROIDISM
     Dosage: 25 MICROGRAM, QD
     Route: 048
  14. LIOTHYRONINE SODIUM (T3) [Suspect]
     Active Substance: LIOTHYRONINE SODIUM
     Indication: MYXOEDEMA COMA
     Dosage: 20 MICROGRAM
     Route: 042
  15. DOPAMINE [Suspect]
     Active Substance: DOPAMINE HYDROCHLORIDE
     Indication: CARDIOGENIC SHOCK
     Route: 065
  16. EPINEPHRINE. [Suspect]
     Active Substance: EPINEPHRINE
     Indication: SINUS BRADYCARDIA
     Dosage: 0.5 MILLIGRAM
     Route: 042

REACTIONS (1)
  - Drug ineffective [Unknown]
